FAERS Safety Report 7629165-5 (Version None)
Quarter: 2011Q3

REPORT INFORMATION
  Report Type: 
  Country: None (occurrence: None)
  Receive Date: 20110722
  Receipt Date: 20110711
  Transmission Date: 20111222
  Serious: Yes (Other)
  Sender: FDA-Public Use
  Company Number: PHHY2010NZ62774

PATIENT
  Sex: Female

DRUGS (1)
  1. CLOZAPINE [Suspect]
     Indication: SCHIZOPHRENIA
     Dosage: UNK
     Dates: start: 20100224, end: 20100601

REACTIONS (4)
  - GESTATIONAL DIABETES [None]
  - INCORRECT DOSE ADMINISTERED [None]
  - MATERNAL EXPOSURE DURING PREGNANCY [None]
  - DEEP VEIN THROMBOSIS [None]
